FAERS Safety Report 5092101-2 (Version None)
Quarter: 2006Q3

REPORT INFORMATION
  Report Type: 
  Country: None (occurrence: None)
  Receive Date: 20060829
  Receipt Date: 20060714
  Transmission Date: 20061208
  Serious: Yes (Hospitalization)
  Sender: FDA-Public Use
  Company Number: US-BOEHRINGER INGELHEIM PHARMACEUTICALS, INC.-2006-BP-08145BP

PATIENT
  Age: 71 Year
  Sex: Male

DRUGS (20)
  1. ATROVENT [Suspect]
     Indication: CHRONIC OBSTRUCTIVE PULMONARY DISEASE
     Route: 055
     Dates: start: 19960101, end: 20060524
  2. ALBUTEROL SPIROS [Concomitant]
  3. NEXIUM [Concomitant]
     Indication: GASTROOESOPHAGEAL REFLUX DISEASE
  4. ZANTAC [Concomitant]
     Indication: GASTROOESOPHAGEAL REFLUX DISEASE
  5. MAALOX FAST BLOCKER [Concomitant]
     Indication: GASTROOESOPHAGEAL REFLUX DISEASE
  6. DIGOXIN [Concomitant]
  7. COUMADIN [Concomitant]
  8. PROSCAR [Concomitant]
  9. FLOMAX [Concomitant]
  10. COREG [Concomitant]
  11. LASIX [Concomitant]
  12. K-DUR 10 [Concomitant]
  13. VYTORIN [Concomitant]
  14. DIOVAN [Concomitant]
  15. SENOKOT [Concomitant]
  16. CENTRUM [Concomitant]
  17. CITRACAL-D [Concomitant]
  18. KLONOPIN [Concomitant]
  19. MUCINEX [Concomitant]
  20. ULTRACET [Concomitant]

REACTIONS (1)
  - CHEST DISCOMFORT [None]
